FAERS Safety Report 21055006 (Version 2)
Quarter: 2022Q3

REPORT INFORMATION
  Report Type: Report from Study
  Country: ES (occurrence: ES)
  Receive Date: 20220707
  Receipt Date: 20220718
  Transmission Date: 20221026
  Serious: Yes (Hospitalization, Other)
  Sender: FDA-Public Use
  Company Number: ES-BRISTOL-MYERS SQUIBB COMPANY-2022-068544

PATIENT
  Age: 74 Year
  Sex: Male
  Weight: 74 kg

DRUGS (9)
  1. CISPLATIN [Suspect]
     Active Substance: CISPLATIN
     Indication: Bladder cancer
     Dosage: MOST RECENT DOSE WAS RECEIVED ON 09-JUL-2021
     Route: 065
     Dates: start: 20210505, end: 20210709
  2. NIVOLUMAB [Suspect]
     Active Substance: NIVOLUMAB
     Indication: Bladder cancer
     Route: 065
     Dates: start: 20210505
  3. NIVOLUMAB [Suspect]
     Active Substance: NIVOLUMAB
     Route: 065
     Dates: start: 20220602, end: 20220602
  4. GEMCITABINE HYDROCHLORIDE [Suspect]
     Active Substance: GEMCITABINE HYDROCHLORIDE
     Indication: Bladder cancer
     Dosage: MOST RECENT DOSE WAS RECEIVED ON 16-JUL-2021
     Route: 065
     Dates: start: 20210505, end: 20210716
  5. HYDROCHLOROTHIAZIDE [Concomitant]
     Active Substance: HYDROCHLOROTHIAZIDE
     Indication: Product used for unknown indication
     Dosage: ONGOING
     Route: 048
  6. CLORAZEPATE DIPOTASSIUM [Concomitant]
     Active Substance: CLORAZEPATE DIPOTASSIUM
     Indication: Product used for unknown indication
     Dosage: ONGOING
     Route: 048
  7. FLATORIL(CLEBOPRIDA 500MCG / SIMETICONA 200MG, 45 TABLET) [Concomitant]
     Indication: Product used for unknown indication
     Dosage: 1 DOSAGE FORM= 2 UNITS NOS, ONGOING
     Route: 048
  8. INFLUENZA VIRUS VACCINE [Concomitant]
     Active Substance: INFLUENZA VIRUS VACCINE
     Indication: Prophylaxis
     Route: 030
     Dates: start: 20211102
  9. PNEUMOCOCO VACCINE - NEUMO C 13 [Concomitant]
     Indication: Prophylaxis
     Route: 030
     Dates: start: 20211102

REACTIONS (1)
  - Pneumonitis [Recovered/Resolved]

NARRATIVE: CASE EVENT DATE: 20220623
